FAERS Safety Report 8927743 (Version 1)
Quarter: 2012Q4

REPORT INFORMATION
  Report Type: 
  Country: RS (occurrence: RS)
  Receive Date: 20121127
  Receipt Date: 20121127
  Transmission Date: 20130627
  Serious: Yes (Other)
  Sender: FDA-Public Use
  Company Number: PHHY2012RS105885

PATIENT
  Age: 29 Year
  Sex: Female
  Weight: 50 kg

DRUGS (5)
  1. CARBAMAZEPINE [Suspect]
     Indication: BIPOLAR DISORDER
     Dosage: 200 mg, once daily
     Route: 048
     Dates: start: 20121101, end: 20121102
  2. BENSEDIN [Concomitant]
     Dosage: 10 mg, TID
     Route: 048
     Dates: start: 20121101
  3. BENSEDIN [Concomitant]
     Dosage: 10 mg, QD
     Route: 030
  4. RISPOLEPT [Concomitant]
     Dosage: 1 mg, BID
     Route: 048
     Dates: start: 20121101
  5. CIPROCINAL [Concomitant]
     Dosage: 500 mg, BID
     Route: 048
     Dates: start: 20121101

REACTIONS (5)
  - Precancerous skin lesion [Recovered/Resolved]
  - Blister [Recovered/Resolved]
  - Erythema [Recovered/Resolved]
  - Maculopathy [Recovered/Resolved]
  - Finger deformity [Recovered/Resolved]
